FAERS Safety Report 10885899 (Version 1)
Quarter: 2015Q1

REPORT INFORMATION
  Report Type: Spontaneous
  Country: US (occurrence: US)
  Receive Date: 20150304
  Receipt Date: 20150304
  Transmission Date: 20150721
  Serious: Yes (Death)
  Sender: FDA-Public Use
  Company Number: US-BANPHARM-20153551

PATIENT
  Age: 41 Year
  Sex: Male

DRUGS (6)
  1. LISINOPRIL. [Suspect]
     Active Substance: LISINOPRIL
  2. WARFARIN [Suspect]
     Active Substance: WARFARIN
  3. OLANZAPINE. [Suspect]
     Active Substance: OLANZAPINE
  4. DIPHENHYDRAMINE UNKNOWN PRODUCT/ACETAMINOPHEN [Suspect]
     Active Substance: ACETAMINOPHEN\DIPHENHYDRAMINE
  5. ESCITALOPRAM [Suspect]
     Active Substance: ESCITALOPRAM OXALATE
  6. PREDNISONE. [Suspect]
     Active Substance: PREDNISONE

REACTIONS (2)
  - Completed suicide [Fatal]
  - Exposure via ingestion [None]
